FAERS Safety Report 24000031 (Version 2)
Quarter: 2024Q3

REPORT INFORMATION
  Report Type: Spontaneous
  Country: US (occurrence: US)
  Receive Date: 20240621
  Receipt Date: 20240703
  Transmission Date: 20241017
  Serious: No
  Sender: PFIZER
  Company Number: US-PFIZER INC-PV202400081400

PATIENT
  Age: 58 Year
  Sex: Female

DRUGS (1)
  1. IBRANCE [Suspect]
     Active Substance: PALBOCICLIB
     Dosage: 125 MG

REACTIONS (3)
  - Fatigue [Not Recovered/Not Resolved]
  - Asthenia [Not Recovered/Not Resolved]
  - Rash [Unknown]
